FAERS Safety Report 13865481 (Version 2)
Quarter: 2024Q4

REPORT INFORMATION
  Report Type: Report from Study
  Country: US (occurrence: US)
  Receive Date: 20170814
  Receipt Date: 20241024
  Transmission Date: 20250114
  Serious: Yes (Other)
  Sender: AEGERION
  Company Number: US-AEGERION PHARMACEUTICAL, INC-AEGR002734

PATIENT
  Age: 69 Year
  Sex: Female
  Weight: 75.646 kg

DRUGS (19)
  1. JUXTAPID [Suspect]
     Active Substance: LOMITAPIDE MESYLATE
     Indication: Type IIa hyperlipidaemia
     Dosage: 5 MG, QD
     Route: 048
     Dates: start: 20150331, end: 20150814
  2. ASPIRIN [Concomitant]
     Active Substance: ASPIRIN
     Indication: Peripheral vascular disorder
     Dosage: 81 MG, QD
     Route: 048
     Dates: start: 20090626, end: 20160213
  3. ATORVASTATIN [Concomitant]
     Active Substance: ATORVASTATIN
     Indication: Dyslipidaemia
     Dosage: 80 MG, QD
     Route: 048
     Dates: start: 20131209
  4. CHANTIX [Concomitant]
     Active Substance: VARENICLINE TARTRATE
     Indication: Smoking cessation therapy
     Dosage: 1 MG, AS DIRECTED
     Route: 048
     Dates: start: 20150323, end: 20150626
  5. CYMBALTA [Concomitant]
     Active Substance: DULOXETINE HYDROCHLORIDE
     Indication: Peripheral vascular disorder
     Dosage: 30 MG, QD
     Route: 048
     Dates: start: 20150331, end: 2021
  6. CYMBALTA [Concomitant]
     Active Substance: DULOXETINE HYDROCHLORIDE
     Dosage: 60 MG, QD
     Route: 048
     Dates: start: 20150331, end: 2021
  7. FUROSEMIDE [Concomitant]
     Active Substance: FUROSEMIDE
     Indication: Hypertension
     Dosage: 20 MG, QD
     Route: 048
     Dates: start: 2006, end: 202112
  8. METOPROLOL TARTRATE [Concomitant]
     Active Substance: METOPROLOL TARTRATE
     Indication: Hypertension
     Dosage: 100 MILLIGRAM, BID
     Route: 048
     Dates: start: 2006, end: 202202
  9. NEXIUM [Concomitant]
     Active Substance: ESOMEPRAZOLE MAGNESIUM
     Indication: Gastrooesophageal reflux disease
     Dosage: 40 MG, QD
     Route: 048
     Dates: start: 2006
  10. NICOTINE [Concomitant]
     Active Substance: NICOTINE
     Indication: Smoking cessation therapy
     Dosage: 21 MG, QD
     Route: 061
     Dates: start: 20150323, end: 20151207
  11. PLAVIX [Concomitant]
     Active Substance: CLOPIDOGREL BISULFATE
     Indication: Peripheral vascular disorder
     Dosage: 75 MG, QD
     Route: 048
     Dates: start: 2006, end: 20160213
  12. APIXABAN [Concomitant]
     Active Substance: APIXABAN
     Indication: Cardiovascular disorder
     Dosage: 5 MG, BID
     Route: 048
     Dates: start: 20160301, end: 20170222
  13. CLOPIDOGREL BISULFATE [Concomitant]
     Active Substance: CLOPIDOGREL BISULFATE
     Indication: Peripheral vascular disorder
     Dosage: 75 MG, QD
     Route: 048
     Dates: start: 20160301, end: 202010
  14. COLACE [Concomitant]
     Active Substance: DOCUSATE SODIUM
     Indication: Abnormal faeces
     Dosage: 100 MG, BID
     Route: 048
     Dates: start: 20160309, end: 20161205
  15. FERREX FORTE [Concomitant]
     Indication: Nutritional supplementation
     Dosage: 150MG-25-1, ONE CAPSULE, BID
     Route: 048
     Dates: start: 20160301, end: 20161205
  16. NEURONTIN [Concomitant]
     Active Substance: GABAPENTIN
     Indication: Trigeminal neuralgia
     Dosage: 300 MG, TID
     Route: 048
     Dates: start: 20160301, end: 20161205
  17. PRAVASTATIN [Concomitant]
     Active Substance: PRAVASTATIN
     Indication: Hypercholesterolaemia
     Dosage: 80 MG, QHS ONCE AT NIGHT
     Route: 048
     Dates: start: 20160725
  18. XANAX [Concomitant]
     Active Substance: ALPRAZOLAM
     Indication: Anxiety
     Dosage: 0.5 MG, QD
     Route: 048
     Dates: start: 20160111
  19. VITAMINS NOS [Concomitant]
     Active Substance: VITAMINS
     Indication: Nutritional supplementation
     Dosage: 1 DOSAGE FORM, QD
     Route: 048
     Dates: start: 20160611

REACTIONS (2)
  - Gastrointestinal polyp [Recovered/Resolved]
  - Gastrointestinal polyp [Recovered/Resolved]

NARRATIVE: CASE EVENT DATE: 20160722
